FAERS Safety Report 5141959-7 (Version None)
Quarter: 2006Q4

REPORT INFORMATION
  Report Type: 
  Country: None (occurrence: None)
  Receive Date: 20061102
  Receipt Date: 20061017
  Transmission Date: 20070319
  Serious: Yes (Hospitalization)
  Sender: FDA-Public Use
  Company Number: PHHO2006IT17430

PATIENT
  Age: 55 Year
  Sex: Male
  Weight: 70 kg

DRUGS (3)
  1. STEROIDS NOS [Concomitant]
     Indication: RENAL TRANSPLANT
  2. SIROLIMUS [Concomitant]
     Indication: RENAL TRANSPLANT
  3. MYFORTIC [Suspect]
     Indication: RENAL TRANSPLANT
     Dosage: 720 MG/DAY
     Route: 048
     Dates: start: 20060619, end: 20061007

REACTIONS (3)
  - BILIARY DILATATION [None]
  - DIARRHOEA [None]
  - TRANSAMINASES INCREASED [None]
